FAERS Safety Report 7162210-2 (Version None)
Quarter: 2010Q4

REPORT INFORMATION
  Report Type: 
  Country: None (occurrence: None)
  Receive Date: 20101215
  Receipt Date: 20090910
  Transmission Date: 20110411
  Serious: Yes (Death, Other)
  Sender: FDA-Public Use
  Company Number: DZ-PFIZER INC-2009267984

PATIENT
  Age: 60 Year

DRUGS (1)
  1. LYRICA [Suspect]
     Indication: PAIN
     Dosage: 50 MG, 3X/DAY
     Route: 048

REACTIONS (3)
  - DEATH [None]
  - HALLUCINATION [None]
  - URINARY RETENTION [None]
